FAERS Safety Report 8513785 (Version 3)
Quarter: 2013Q1

REPORT INFORMATION
  Report Type: Spontaneous
  Country: US (occurrence: US)
  Receive Date: 20120416
  Receipt Date: 20130208
  Transmission Date: 20140127
  Serious: Yes (Hospitalization)
  Sender: FDA-Public Use
  Company Number: US-BAYER-2012-035396

PATIENT
  Age: 24 Year
  Sex: Female
  Weight: 58.96 kg

DRUGS (14)
  1. YASMIN [Suspect]
     Indication: CONTRACEPTION
     Dosage: UNK
     Dates: start: 20030922, end: 20040113
  2. RETIN-A [Concomitant]
     Indication: HEADACHE
  3. FIORICET [Concomitant]
     Dosage: UNK UNK, Q4HR
  4. IMITREX [Concomitant]
  5. ANTIBIOTICS [Concomitant]
  6. DILAUDID [Concomitant]
     Dosage: UNK
     Route: 042
  7. ADVIL [Concomitant]
     Dosage: UNK UNK, PRN
  8. ANTI-ACNE PREPARATIONS FOR TOPICAL USE [Concomitant]
     Dosage: UNK
     Dates: start: 20021029, end: 200904
  9. MINOCYCLINE [Concomitant]
     Dosage: UNK
     Dates: start: 20030115, end: 200310
  10. CEFADROXIL [Concomitant]
     Dosage: UNK
     Dates: start: 20031104, end: 20031114
  11. TAZORAC [Concomitant]
     Dosage: UNK
  12. HYDROCORTISONE [Concomitant]
     Dosage: 25 MG, DAILY
     Dates: start: 20031230, end: 20040110
  13. ACETAMINOPHEN W/BUTALBITAL [Concomitant]
     Indication: HEADACHE
     Dosage: 50/325/40
     Dates: start: 20040106, end: 20040111
  14. ADOXA [Concomitant]
     Indication: ACNE
     Dosage: 100 MG, QD
     Dates: start: 20031230, end: 20040113

REACTIONS (6)
  - Transverse sinus thrombosis [None]
  - Injury [None]
  - Emotional distress [None]
  - General physical health deterioration [None]
  - Anxiety [None]
  - Headache [None]
